FAERS Safety Report 6369988-6 (Version None)
Quarter: 2009Q3

REPORT INFORMATION
  Report Type: 
  Country: None (occurrence: None)
  Receive Date: 20090923
  Receipt Date: 20070405
  Transmission Date: 20100115
  Serious: Yes (Hospitalization, Other)
  Sender: FDA-Public Use
  Company Number: US-ASTRAZENECA-2005UW13236

PATIENT
  Age: 13 Year
  Sex: Female
  Weight: 106.6 kg

DRUGS (19)
  1. SEROQUEL [Suspect]
     Indication: BIPOLAR I DISORDER
     Dosage: 25 MG - 200 MG
     Route: 048
     Dates: start: 20030118, end: 20041009
  2. SEROQUEL [Suspect]
     Indication: AGITATION
     Dosage: 25 MG - 200 MG
     Route: 048
     Dates: start: 20030118, end: 20041009
  3. SEROQUEL [Suspect]
     Route: 048
     Dates: start: 20031001, end: 20041001
  4. SEROQUEL [Suspect]
     Route: 048
     Dates: start: 20031001, end: 20041001
  5. PROZAC [Concomitant]
     Indication: BIPOLAR DISORDER
  6. WELBUTRON [Concomitant]
     Indication: BIPOLAR DISORDER
  7. ABILIFY [Concomitant]
     Dates: start: 20060401, end: 20061101
  8. GEODON [Concomitant]
  9. LAMICTAL [Concomitant]
  10. RISPERDAL [Concomitant]
  11. ADDERALL 10 [Concomitant]
  12. TOPAMAX [Concomitant]
  13. TRAZODONE [Concomitant]
  14. NOVOLOG [Concomitant]
  15. PROVIGIL [Concomitant]
  16. TRILEPTAL [Concomitant]
  17. PERCOCET [Concomitant]
  18. SINGULAIR [Concomitant]
  19. DEPAKOTE [Concomitant]

REACTIONS (6)
  - DEPRESSION [None]
  - DIABETIC KETOACIDOSIS [None]
  - GLYCOSURIA [None]
  - HYPERGLYCAEMIA [None]
  - OBESITY [None]
  - TYPE 1 DIABETES MELLITUS [None]
